FAERS Safety Report 4465274-X (Version None)
Quarter: 2004Q4

REPORT INFORMATION
  Report Type: 
  Country: None (occurrence: None)
  Receive Date: 20041004
  Receipt Date: 20040928
  Transmission Date: 20050328
  Serious: Yes (Hospitalization)
  Sender: FDA-Public Use
  Company Number: US-JNJFOC-20040805560

PATIENT
  Age: 15 Year
  Sex: Male

DRUGS (5)
  1. REMICADE [Suspect]
     Indication: CROHN'S DISEASE
     Route: 042
  2. PREDNISONE [Concomitant]
  3. FLAGYL [Concomitant]
  4. ZANTAC [Concomitant]
  5. CAPTOPRIL [Concomitant]

REACTIONS (2)
  - STATUS EPILEPTICUS [None]
  - VASCULITIS CEREBRAL [None]
